FAERS Safety Report 7329220-3 (Version None)
Quarter: 2011Q1

REPORT INFORMATION
  Report Type: 
  Country: None (occurrence: None)
  Receive Date: 20110303
  Receipt Date: 20110228
  Transmission Date: 20110831
  Serious: Yes (Death)
  Sender: FDA-Public Use
  Company Number: A0910258A

PATIENT
  Age: 86 Year
  Sex: Female

DRUGS (2)
  1. PROMACTA [Suspect]
     Dosage: 50MG PER DAY
     Route: 048
     Dates: start: 20100320, end: 20110124
  2. ROMIPLOSTIM [Concomitant]

REACTIONS (1)
  - COLON CANCER [None]
